FAERS Safety Report 18052806 (Version 1)
Quarter: 2020Q3

REPORT INFORMATION
  Report Type: Spontaneous
  Country: US (occurrence: US)
  Receive Date: 20200722
  Receipt Date: 20200722
  Transmission Date: 20201103
  Serious: No
  Sender: FDA-Public Use
  Company Number: US-HORIZON-ACT-0278-2020

PATIENT
  Age: 29 Year
  Sex: Female

DRUGS (11)
  1. KEPPRA [Concomitant]
     Active Substance: LEVETIRACETAM
  2. VITAMIN D3 [Concomitant]
     Active Substance: CHOLECALCIFEROL
  3. POTASSIUM CITRATE MONOHYDRATE [Concomitant]
  4. ALDCATAZIDE [Concomitant]
  5. PREDNISONE. [Concomitant]
     Active Substance: PREDNISONE
  6. FOLIC ACID. [Concomitant]
     Active Substance: FOLIC ACID
  7. LEXAPRO [Concomitant]
     Active Substance: ESCITALOPRAM OXALATE
  8. VITAMIN C [Concomitant]
     Active Substance: ASCORBIC ACID
  9. LISINOPRIL HCTZ [Concomitant]
     Active Substance: HYDROCHLOROTHIAZIDE\LISINOPRIL
  10. MOXIFLOXACIN. [Concomitant]
     Active Substance: MOXIFLOXACIN
  11. ACTIMMUNE [Suspect]
     Active Substance: INTERFERON GAMMA-1B
     Indication: OSTEOPETROSIS
     Dosage: 0.23ML MWF
     Route: 058
     Dates: start: 20180812

REACTIONS (1)
  - Pyrexia [Not Recovered/Not Resolved]
